FAERS Safety Report 19412497 (Version 1)
Quarter: 2021Q2

REPORT INFORMATION
  Report Type: Spontaneous
  Country: PT (occurrence: PT)
  Receive Date: 20210614
  Receipt Date: 20210614
  Transmission Date: 20210717
  Serious: Yes (Hospitalization, Disabling, Other)
  Sender: FDA-Public Use
  Company Number: PT-STRIDES ARCOLAB LIMITED-2021SP006366

PATIENT
  Age: 65 Year
  Sex: Male

DRUGS (1)
  1. PREDNISOLONE. [Suspect]
     Active Substance: PREDNISOLONE
     Indication: PROCTITIS ULCERATIVE
     Dosage: 20 MILLIGRAM, PER DAY
     Route: 048

REACTIONS (8)
  - Condition aggravated [Recovered/Resolved]
  - Pseudomonas infection [Recovered/Resolved]
  - Gangrene [Recovered/Resolved]
  - Diabetic foot infection [Recovered/Resolved]
  - Fusarium infection [Recovered/Resolved]
  - Diabetic foot [Recovered/Resolved]
  - Onychomycosis [Recovered/Resolved]
  - Superinfection bacterial [Recovered/Resolved]
